FAERS Safety Report 24356897 (Version 1)
Quarter: 2024Q3

REPORT INFORMATION
  Report Type: Spontaneous
  Country: US (occurrence: US)
  Receive Date: 20240924
  Receipt Date: 20240924
  Transmission Date: 20241017
  Serious: No
  Sender: DR REDDYS
  Company Number: None

PATIENT
  Age: 69 Year
  Sex: Male

DRUGS (3)
  1. DIVALPROEX SODIUM [Suspect]
     Active Substance: DIVALPROEX SODIUM
     Indication: Schizoaffective disorder bipolar type
     Dosage: UP TO 250 MG TWO TIMES A DAY
     Dates: start: 2022
  2. OLANZAPINE [Suspect]
     Active Substance: OLANZAPINE
     Indication: Schizoaffective disorder bipolar type
     Dosage: 15 MG TWO TIMES A DAY
     Dates: start: 2022
  3. OXCARBAZEPINE [Suspect]
     Active Substance: OXCARBAZEPINE
     Indication: Schizoaffective disorder bipolar type
     Dosage: 150 MG TWO TIMES A DAY
     Dates: start: 2022

REACTIONS (1)
  - Sedation complication [Unknown]

NARRATIVE: CASE EVENT DATE: 20220101
